FAERS Safety Report 18055885 (Version 1)
Quarter: 2020Q3

REPORT INFORMATION
  Report Type: Spontaneous
  Country: CA (occurrence: CA)
  Receive Date: 20200722
  Receipt Date: 20200722
  Transmission Date: 20201103
  Serious: Yes (Hospitalization)
  Sender: FDA-Public Use
  Company Number: CA-ACTELION-A-NJ2019-194538

PATIENT
  Sex: Male
  Weight: 58.96 kg

DRUGS (7)
  1. RIVAROXABAN [Concomitant]
     Active Substance: RIVAROXABAN
  2. ADCIRCA [Concomitant]
     Active Substance: TADALAFIL
  3. BISOPROLOL [Concomitant]
     Active Substance: BISOPROLOL
  4. RAMIPRIL. [Concomitant]
     Active Substance: RAMIPRIL
  5. SPIRONOLACTONE. [Concomitant]
     Active Substance: SPIRONOLACTONE
  6. OPSUMIT [Suspect]
     Active Substance: MACITENTAN
     Indication: PULMONARY ARTERIAL HYPERTENSION
     Dosage: 10 MG, QD
     Route: 048
     Dates: start: 20190726
  7. FUROSEMIDE. [Concomitant]
     Active Substance: FUROSEMIDE

REACTIONS (2)
  - Diarrhoea [Not Recovered/Not Resolved]
  - Blood pressure abnormal [Not Recovered/Not Resolved]
